FAERS Safety Report 22618722 (Version 1)
Quarter: 2023Q2

REPORT INFORMATION
  Report Type: Other
  Country: US (occurrence: None)
  Receive Date: 20230620
  Receipt Date: 20230620
  Transmission Date: 20230721
  Serious: Yes (Other)
  Sender: FDA-Public Use
  Company Number: US-ROCHE-3369028

PATIENT
  Age: 62 Year

DRUGS (1)
  1. OCREVUS [Suspect]
     Active Substance: OCRELIZUMAB
     Indication: Multiple sclerosis
     Dosage: INFUSE 600MG INTRAVENOUSLY EVERY 24 WEEK(S)
     Route: 042

REACTIONS (5)
  - Multiple sclerosis [Unknown]
  - Urinary tract infection [Unknown]
  - Fungal infection [Unknown]
  - Miliaria [Unknown]
  - General physical health deterioration [Unknown]
